FAERS Safety Report 5690904-4 (Version None)
Quarter: 2008Q2

REPORT INFORMATION
  Report Type: 
  Country: None (occurrence: None)
  Receive Date: 20080401
  Receipt Date: 20080328
  Transmission Date: 20081010
  Serious: Yes (Hospitalization)
  Sender: FDA-Public Use
  Company Number: AU-ASTRAZENECA-2008AP02127

PATIENT
  Age: 25307 Day
  Sex: Male
  Weight: 76 kg

DRUGS (6)
  1. METOPROLOL SUCCINATE [Suspect]
     Route: 048
  2. RAMIPRIL [Suspect]
     Route: 065
  3. TRAMADOL HCL [Suspect]
     Route: 065
  4. ATORVASTATIN CALCIUM [Concomitant]
     Route: 065
  5. OMEPRAZOLE [Concomitant]
     Route: 048
  6. ALLOPURINOL [Concomitant]
     Route: 065

REACTIONS (3)
  - ANGIOEDEMA [None]
  - GOUT [None]
  - RASH [None]
